FAERS Safety Report 24275482 (Version 1)
Quarter: 2024Q3

REPORT INFORMATION
  Report Type: Spontaneous
  Country: JP (occurrence: JP)
  Receive Date: 20240903
  Receipt Date: 20240903
  Transmission Date: 20241016
  Serious: Yes (Other)
  Sender: AMGEN
  Company Number: JP-ONO-2024JP017786

PATIENT
  Age: 76 Year
  Sex: Male

DRUGS (3)
  1. PARSABIV [Suspect]
     Active Substance: ETELCALCETIDE HYDROCHLORIDE
     Indication: Hyperparathyroidism secondary
     Dosage: 10 MG
     Route: 010
     Dates: start: 202408
  2. OXAROL [Suspect]
     Active Substance: MAXACALCITOL
     Indication: Product used for unknown indication
     Dosage: 10 UG
     Route: 042
     Dates: start: 202408
  3. FERRIC CITRATE ANHYDROUS [Suspect]
     Active Substance: FERRIC CITRATE ANHYDROUS
     Indication: Product used for unknown indication
     Dosage: UNK
     Route: 048

REACTIONS (1)
  - Cerebral haemorrhage [Not Recovered/Not Resolved]
